FAERS Safety Report 7085080-X (Version None)
Quarter: 2010Q4

REPORT INFORMATION
  Report Type: 
  Country: None (occurrence: None)
  Receive Date: 20101105
  Receipt Date: 20101102
  Transmission Date: 20110411
  Serious: Yes (Other)
  Sender: FDA-Public Use
  Company Number: US-WYE-H18525710

PATIENT
  Sex: Female
  Weight: 77.18 kg

DRUGS (6)
  1. RELISTOR [Suspect]
     Indication: CONSTIPATION
     Route: 030
     Dates: start: 20101101, end: 20101101
  2. FIORINAL W/CODEINE [Concomitant]
     Dosage: UNKNOWN
  3. OXYCODONE HCL [Concomitant]
     Dosage: UNKNOWN
  4. OXYCONTIN [Concomitant]
  5. PHENERGAN [Concomitant]
     Dosage: UNKNOWN
     Route: 054
  6. KLONOPIN [Concomitant]
     Dosage: UNKNOWN

REACTIONS (6)
  - ABDOMINAL DISTENSION [None]
  - DRUG DISPENSING ERROR [None]
  - GALLBLADDER DISORDER [None]
  - INCORRECT ROUTE OF DRUG ADMINISTRATION [None]
  - UNEVALUABLE EVENT [None]
  - VOMITING [None]
